FAERS Safety Report 4731206-X (Version None)
Quarter: 2005Q3

REPORT INFORMATION
  Report Type: 
  Country: None (occurrence: None)
  Receive Date: 20050729
  Receipt Date: 20050719
  Transmission Date: 20060218
  Serious: Yes (Other)
  Sender: FDA-Public Use
  Company Number: 2005076541

PATIENT
  Age: 86 Year
  Sex: Male
  Weight: 68.0396 kg

DRUGS (1)
  1. BENADRYL [Suspect]
     Indication: RHINORRHOEA
     Dosage: 1 TAB BID, ORAL
     Route: 048
     Dates: start: 20050401, end: 20050501

REACTIONS (3)
  - DEPRESSION [None]
  - PAIN [None]
  - URINARY RETENTION [None]
